FAERS Safety Report 6308187-0 (Version None)
Quarter: 2009Q3

REPORT INFORMATION
  Report Type: 
  Country: None (occurrence: None)
  Receive Date: 20090813
  Receipt Date: 20090804
  Transmission Date: 20100115
  Serious: Yes (Other)
  Sender: FDA-Public Use
  Company Number: HK-PFIZER INC-2009218592

PATIENT
  Age: 56 Year

DRUGS (2)
  1. NORVASC [Suspect]
     Indication: HYPERTENSION
     Dosage: 5 MG, 1X/DAY
     Route: 048
     Dates: start: 20090225, end: 20090526
  2. NORVASC [Suspect]
     Dosage: 5 MG, 1X/DAY
     Route: 048
     Dates: start: 20090601, end: 20090725

REACTIONS (5)
  - DIZZINESS [None]
  - FATIGUE [None]
  - MACULAR DEGENERATION [None]
  - ORTHOSTATIC HYPOTENSION [None]
  - VISION BLURRED [None]
